FAERS Safety Report 17430861 (Version 1)
Quarter: 2020Q1

REPORT INFORMATION
  Report Type: Spontaneous
  Country: US (occurrence: US)
  Receive Date: 20200217
  Receipt Date: 20200217
  Transmission Date: 20200409
  Serious: No
  Sender: FDA-Public Use
  Company Number: None

PATIENT
  Age: 62 Year
  Sex: Female
  Weight: 92.25 kg

DRUGS (9)
  1. VITAMIN D3 [Concomitant]
     Active Substance: CHOLECALCIFEROL
  2. GLUCOSAMONE/CHONDROITIN [Concomitant]
  3. FISH OIL [Concomitant]
     Active Substance: FISH OIL
  4. CALCIUM [Concomitant]
     Active Substance: CALCIUM
  5. LEVOTHYROXINE. [Concomitant]
     Active Substance: LEVOTHYROXINE
  6. CELEBREX [Concomitant]
     Active Substance: CELECOXIB
  7. ENBREL [Suspect]
     Active Substance: ETANERCEPT
     Indication: RHEUMATOID ARTHRITIS
     Dates: start: 20191219, end: 20200130
  8. PREDNISONE. [Concomitant]
     Active Substance: PREDNISONE
  9. LUTEIN [Concomitant]
     Active Substance: LUTEIN

REACTIONS (4)
  - Injection site pruritus [None]
  - Injection site pain [None]
  - Injection site urticaria [None]
  - Headache [None]

NARRATIVE: CASE EVENT DATE: 20191226
